FAERS Safety Report 4512129-8 (Version None)
Quarter: 2004Q4

REPORT INFORMATION
  Report Type: 
  Country: None (occurrence: None)
  Receive Date: 20041129
  Receipt Date: 20031021
  Transmission Date: 20050328
  Serious: No
  Sender: FDA-Public Use
  Company Number: NV15255

PATIENT
  Sex: Female

DRUGS (1)
  1. LANOXIN [Suspect]
     Indication: ILL-DEFINED DISORDER
     Route: 065

REACTIONS (1)
  - ASTHENIA [None]
